FAERS Safety Report 16213155 (Version 1)
Quarter: 2019Q2

REPORT INFORMATION
  Report Type: Spontaneous
  Country: HU (occurrence: HU)
  Receive Date: 20190418
  Receipt Date: 20190418
  Transmission Date: 20190711
  Serious: Yes (Hospitalization, Other)
  Sender: FDA-Public Use
  Company Number: HU-ALEXION-A201904321

PATIENT
  Age: 17 Year
  Sex: Male
  Weight: 91.4 kg

DRUGS (3)
  1. KANUMA [Suspect]
     Active Substance: SEBELIPASE ALFA
     Dosage: 100 MG, UNK
     Route: 065
     Dates: start: 20190314
  2. KANUMA [Suspect]
     Active Substance: SEBELIPASE ALFA
     Dosage: 100 MG, UNK
     Route: 065
     Dates: start: 20190301
  3. KANUMA [Suspect]
     Active Substance: SEBELIPASE ALFA
     Indication: LYSOSOMAL ACID LIPASE DEFICIENCY
     Dosage: 10 VIALS/WEEK
     Route: 042

REACTIONS (11)
  - C-reactive protein increased [Unknown]
  - Pyrexia [Recovering/Resolving]
  - Dehydration [Unknown]
  - Leukopenia [Unknown]
  - Diarrhoea [Recovering/Resolving]
  - Procalcitonin abnormal [Unknown]
  - Asthenia [Unknown]
  - Abdominal pain [Recovering/Resolving]
  - Eosinophilia [Unknown]
  - Liver function test increased [Unknown]
  - Headache [Recovering/Resolving]

NARRATIVE: CASE EVENT DATE: 20190304
